FAERS Safety Report 6600117-7 (Version None)
Quarter: 2010Q1

REPORT INFORMATION
  Report Type: 
  Country: None (occurrence: None)
  Receive Date: 20100224
  Receipt Date: 20100215
  Transmission Date: 20100710
  Serious: Yes (Other)
  Sender: FDA-Public Use
  Company Number: GXKR2010BR01872

PATIENT
  Age: 33 Year
  Sex: Male

DRUGS (3)
  1. METHYLPREDNISOLONE [Suspect]
     Indication: RETINAL DETACHMENT
     Dosage: 1 G/DAY (PULSE THERAPY)
     Route: 065
  2. PREDNISONE TAB [Suspect]
     Indication: RETINAL DETACHMENT
     Dosage: 80 MG/DAY
     Route: 065
     Dates: start: 20080701
  3. PREDNISONE TAB [Suspect]
     Dosage: 120 MG/DAY
     Route: 065

REACTIONS (3)
  - CHORIORETINOPATHY [None]
  - RETINAL LASER COAGULATION [None]
  - VISUAL ACUITY REDUCED [None]
